FAERS Safety Report 12676944 (Version 1)
Quarter: 2016Q3

REPORT INFORMATION
  Report Type: Spontaneous
  Country: US (occurrence: US)
  Receive Date: 20160823
  Receipt Date: 20160823
  Transmission Date: 20161109
  Serious: No
  Sender: FDA-Public Use
  Company Number: US-TEVA-593627USA

PATIENT
  Sex: Female

DRUGS (1)
  1. CARBIDOPA AND LEVODOPA [Suspect]
     Active Substance: CARBIDOPA\LEVODOPA
     Indication: TORTICOLLIS
     Dosage: 25 MG/100 MG
     Route: 065

REACTIONS (13)
  - Anxiety [Unknown]
  - Feeling jittery [Unknown]
  - Speech disorder [Unknown]
  - Visual impairment [Unknown]
  - Cognitive disorder [Unknown]
  - Nervousness [Unknown]
  - Dry mouth [Unknown]
  - Muscle spasms [Unknown]
  - Neck pain [Unknown]
  - Product use issue [Unknown]
  - Product substitution issue [Unknown]
  - Muscle tightness [Unknown]
  - Dyskinesia [Unknown]
